FAERS Safety Report 20671888 (Version 3)
Quarter: 2022Q2

REPORT INFORMATION
  Report Type: Report from Study
  Country: FR (occurrence: FR)
  Receive Date: 20220405
  Receipt Date: 20220504
  Transmission Date: 20220721
  Serious: Yes (Hospitalization)
  Sender: FDA-Public Use
  Company Number: FR-ABBVIE-22K-056-4317132-00

PATIENT
  Age: 78 Year
  Sex: Female

DRUGS (3)
  1. CARBIDOPA\LEVODOPA [Suspect]
     Active Substance: CARBIDOPA\LEVODOPA
     Indication: Parkinson^s disease
     Dosage: MD: 5ML; CR: 6ML/H FROM 7AM TO 12P, 6.5ML/H FROM 12PM TO 8PM, 3ML/H 8PM TO 7AM; ED: 3ML
     Route: 050
     Dates: start: 202105
  2. CARBIDOPA\LEVODOPA [Suspect]
     Active Substance: CARBIDOPA\LEVODOPA
  3. CLOZAPINE [Suspect]
     Active Substance: CLOZAPINE
     Indication: Product used for unknown indication
     Route: 065

REACTIONS (11)
  - Malnutrition [Unknown]
  - Device issue [Unknown]
  - Device dislocation [Unknown]
  - Stoma site pain [Unknown]
  - Stoma site inflammation [Unknown]
  - Stoma site erythema [Unknown]
  - Hallucination [Unknown]
  - Dyskinesia [Unknown]
  - Freezing phenomenon [Unknown]
  - Diarrhoea [Unknown]
  - Nausea [Unknown]

NARRATIVE: CASE EVENT DATE: 20220301
